FAERS Safety Report 21943884 (Version 1)
Quarter: 2023Q1

REPORT INFORMATION
  Report Type: Spontaneous
  Country: US (occurrence: None)
  Receive Date: 20230201
  Receipt Date: 20230201
  Transmission Date: 20230418
  Serious: Yes (Death)
  Sender: FDA-Public Use
  Company Number: None

PATIENT
  Sex: Female

DRUGS (1)
  1. CREON [Suspect]
     Active Substance: PANCRELIPASE AMYLASE\PANCRELIPASE LIPASE\PANCRELIPASE PROTEASE
     Indication: Pancreatic carcinoma
     Dosage: OTHER QUANTITY : 36000 UNITS;?FREQUENCY : AS DIRECTED;?TAKE 2 CAPSULES BY MOUTH 3 TIMES A DAY WITH M
     Route: 048
     Dates: start: 202212

REACTIONS (1)
  - Death [None]
